FAERS Safety Report 24387144 (Version 1)
Quarter: 2024Q4

REPORT INFORMATION
  Report Type: Report from Study
  Country: CA (occurrence: CA)
  Receive Date: 20241002
  Receipt Date: 20241002
  Transmission Date: 20250114
  Serious: Yes (Death)
  Sender: BIOGEN
  Company Number: CA-BIOGEN-2024BI01284488

PATIENT
  Age: 59 Year
  Sex: Female

DRUGS (1)
  1. DALFAMPRIDINE [Suspect]
     Active Substance: DALFAMPRIDINE
     Indication: Multiple sclerosis
     Route: 050
     Dates: start: 20121005

REACTIONS (1)
  - Death [Fatal]

NARRATIVE: CASE EVENT DATE: 20220115
